FAERS Safety Report 5068621-3 (Version None)
Quarter: 2006Q3

REPORT INFORMATION
  Report Type: 
  Country: None (occurrence: None)
  Receive Date: 20060802
  Receipt Date: 20060110
  Transmission Date: 20061208
  Serious: No
  Sender: FDA-Public Use
  Company Number: US-BRISTOL-MYERS SQUIBB COMPANY-13243431

PATIENT
  Sex: Female

DRUGS (8)
  1. COUMADIN [Suspect]
     Dates: start: 20010101
  2. BYETTA [Suspect]
     Indication: DIABETES MELLITUS NON-INSULIN-DEPENDENT
     Route: 058
     Dates: start: 20050101
  3. LISINOPRIL [Concomitant]
  4. MIRAPEX [Concomitant]
  5. MAXZIDE [Concomitant]
  6. SELEGILINE HCL [Concomitant]
  7. METFORMIN HYDROCHLORIDE [Concomitant]
  8. GLIPIZIDE [Concomitant]

REACTIONS (1)
  - INTERNATIONAL NORMALISED RATIO INCREASED [None]
